FAERS Safety Report 18170564 (Version 1)
Quarter: 2020Q3

REPORT INFORMATION
  Report Type: Spontaneous
  Country: US (occurrence: US)
  Receive Date: 20200819
  Receipt Date: 20200819
  Transmission Date: 20201103
  Serious: No
  Sender: FDA-Public Use
  Company Number: US-JNJFOC-20200816110

PATIENT
  Age: 62 Year
  Sex: Male
  Weight: 75.3 kg

DRUGS (2)
  1. TREMFYA [Suspect]
     Active Substance: GUSELKUMAB
  2. TREMFYA [Suspect]
     Active Substance: GUSELKUMAB
     Indication: PSORIASIS
     Route: 065
     Dates: start: 201810

REACTIONS (3)
  - Lymphadenopathy [Unknown]
  - Night sweats [Unknown]
  - Weight decreased [Unknown]

NARRATIVE: CASE EVENT DATE: 20200714
